FAERS Safety Report 15516833 (Version 1)
Quarter: 2018Q4

REPORT INFORMATION
  Report Type: Spontaneous
  Country: US (occurrence: US)
  Receive Date: 20181011
  Receipt Date: 20181011
  Transmission Date: 20190205
  Serious: Yes (Death, Hospitalization)
  Sender: FDA-Public Use
  Company Number: None

PATIENT
  Age: 81 Year
  Sex: Male

DRUGS (7)
  1. LETAIRIS [Suspect]
     Active Substance: AMBRISENTAN
     Indication: PULMONARY ARTERIAL HYPERTENSION
     Route: 048
     Dates: start: 201203
  2. METOPROLOL. [Concomitant]
     Active Substance: METOPROLOL
  3. SPIRONOLACTONE. [Concomitant]
     Active Substance: SPIRONOLACTONE
  4. BUMETANIDE. [Concomitant]
     Active Substance: BUMETANIDE
  5. HYDROXYZINE [Concomitant]
     Active Substance: HYDROXYZINE HYDROCHLORIDE
  6. TADALAFIL. [Concomitant]
     Active Substance: TADALAFIL
  7. DIGOXIN. [Concomitant]
     Active Substance: DIGOXIN

REACTIONS (6)
  - Asthenia [None]
  - Bradycardia [None]
  - Cardiac arrest [None]
  - Fall [None]
  - Clostridium difficile colitis [None]
  - Renal failure [None]

NARRATIVE: CASE EVENT DATE: 20181002
